FAERS Safety Report 16296046 (Version 3)
Quarter: 2019Q2

REPORT INFORMATION
  Report Type: Report from Study
  Country: DE (occurrence: DE)
  Receive Date: 20190510
  Receipt Date: 20190530
  Transmission Date: 20190711
  Serious: Yes (Hospitalization)
  Sender: FDA-Public Use
  Company Number: DE-JNJFOC-20190418526

PATIENT
  Age: 31 Year
  Sex: Male
  Weight: 70 kg

DRUGS (8)
  1. URSOFALK [Concomitant]
     Active Substance: URSODIOL
     Indication: CHOLELITHIASIS
     Route: 065
     Dates: start: 20180803
  2. STELARA [Suspect]
     Active Substance: USTEKINUMAB
     Indication: CROHN^S DISEASE
     Route: 058
     Dates: start: 20190201
  3. ETORICOXIB. [Concomitant]
     Active Substance: ETORICOXIB
     Indication: ARTHRALGIA
     Route: 065
     Dates: start: 20190405
  4. BUDESONID [Suspect]
     Active Substance: BUDESONIDE
     Indication: CROHN^S DISEASE
     Route: 065
     Dates: start: 20190405
  5. METRONIDAZOLE. [Concomitant]
     Active Substance: METRONIDAZOLE
     Indication: POUCHITIS
     Route: 065
     Dates: start: 20190405, end: 20190415
  6. METRONIDAZOLE. [Concomitant]
     Active Substance: METRONIDAZOLE
     Indication: POUCHITIS
     Route: 065
     Dates: start: 20190405, end: 20190415
  7. AZATHIOPRIN [Suspect]
     Active Substance: AZATHIOPRINE
     Indication: CROHN^S DISEASE
     Route: 065
     Dates: start: 20180626
  8. PANTOPRAZOL [Concomitant]
     Active Substance: PANTOPRAZOLE SODIUM
     Indication: GASTRIC ULCER
     Route: 065

REACTIONS (5)
  - Musculoskeletal pain [Not Recovered/Not Resolved]
  - Arthralgia [Not Recovered/Not Resolved]
  - Decreased appetite [Not Recovered/Not Resolved]
  - Frequent bowel movements [Not Recovered/Not Resolved]
  - Night sweats [Not Recovered/Not Resolved]

NARRATIVE: CASE EVENT DATE: 20190402
